FAERS Safety Report 7503418-3 (Version None)
Quarter: 2011Q2

REPORT INFORMATION
  Report Type: 
  Country: None (occurrence: None)
  Receive Date: 20110525
  Receipt Date: 20110519
  Transmission Date: 20111010
  Serious: Yes (Death)
  Sender: FDA-Public Use
  Company Number: D0070905A

PATIENT
  Sex: Female

DRUGS (3)
  1. ATROVENT [Suspect]
     Route: 065
  2. BUPROPION HYDROCHLORIDE [Suspect]
     Route: 065
  3. BECLOMETHASONE DIPROPIONATE [Suspect]
     Route: 065

REACTIONS (2)
  - COMPLETED SUICIDE [None]
  - INTENTIONAL OVERDOSE [None]
